FAERS Safety Report 25451376 (Version 1)
Quarter: 2025Q2

REPORT INFORMATION
  Report Type: Spontaneous
  Country: GB (occurrence: GB)
  Receive Date: 20250618
  Receipt Date: 20250618
  Transmission Date: 20250716
  Serious: Yes (Other)
  Sender: LABORATOIRES SERB
  Company Number: GB-SERB S.A.S.-2178950

PATIENT
  Age: 25 Year
  Sex: Female

DRUGS (1)
  1. CYANOKIT [Suspect]
     Active Substance: HYDROXOCOBALAMIN
     Indication: Product used for unknown indication

REACTIONS (1)
  - Burning feet syndrome [Not Recovered/Not Resolved]

NARRATIVE: CASE EVENT DATE: 20250306
